FAERS Safety Report 7732822-3 (Version None)
Quarter: 2011Q3

REPORT INFORMATION
  Report Type: 
  Country: None (occurrence: None)
  Receive Date: 20110901
  Receipt Date: 20110818
  Transmission Date: 20111222
  Serious: Yes (Hospitalization, Other)
  Sender: FDA-Public Use
  Company Number: AUR-APL-2011-04555

PATIENT
  Age: 72 Year
  Sex: Male

DRUGS (2)
  1. FLOXACILLIN SODIUM [Concomitant]
  2. TERBINAFINE HCL [Suspect]
     Indication: ONYCHOMYCOSIS
     Dosage: 250 MG (250 MG, 1 IN 1 D),

REACTIONS (13)
  - PUSTULAR PSORIASIS [None]
  - RASH GENERALISED [None]
  - RASH ERYTHEMATOUS [None]
  - SUBCORNEAL PUSTULAR DERMATOSIS [None]
  - POST INFLAMMATORY PIGMENTATION CHANGE [None]
  - ACUTE GENERALISED EXANTHEMATOUS PUSTULOSIS [None]
  - NEUTROPHILIA [None]
  - EXFOLIATIVE RASH [None]
  - RASH PUSTULAR [None]
  - DERMATITIS [None]
  - LEUKOCYTOSIS [None]
  - RASH PRURITIC [None]
  - SKIN OEDEMA [None]
